FAERS Safety Report 8290779-3 (Version None)
Quarter: 2012Q2

REPORT INFORMATION
  Report Type: 
  Country: None (occurrence: None)
  Receive Date: 20120413
  Receipt Date: 20120413
  Transmission Date: 20120825
  Serious: Yes (Disabling)
  Sender: FDA-Public Use
  Company Number: None

PATIENT
  Age: 79 Year
  Sex: Female
  Weight: 76.2043 kg

DRUGS (1)
  1. LEVOFLOXACIN [Suspect]
     Dosage: 1 PER DAY FOR 7 DAYS MOUTH
     Route: 048
     Dates: start: 20120308, end: 20120309

REACTIONS (4)
  - PAIN IN EXTREMITY [None]
  - TENDON PAIN [None]
  - GAIT DISTURBANCE [None]
  - JOINT SWELLING [None]
